FAERS Safety Report 18453332 (Version 2)
Quarter: 2020Q4

REPORT INFORMATION
  Report Type: Report from Study
  Country: BD (occurrence: BD)
  Receive Date: 20201102
  Receipt Date: 20201107
  Transmission Date: 20210114
  Serious: Yes (Death, Hospitalization)
  Sender: FDA-Public Use
  Company Number: NVSC2020BD293550

PATIENT
  Age: 80 Year
  Sex: Male
  Weight: 60 kg

DRUGS (1)
  1. EXELON [Suspect]
     Active Substance: RIVASTIGMINE TARTRATE
     Indication: DEMENTIA
     Dosage: 1 DF, QD (1 PATCH DAILY)
     Route: 062
     Dates: start: 2012

REACTIONS (2)
  - Nasopharyngitis [Fatal]
  - Pyrexia [Fatal]

NARRATIVE: CASE EVENT DATE: 2020
